APPROVED DRUG PRODUCT: AMIFOSTINE
Active Ingredient: AMIFOSTINE
Strength: 500MG/VIAL
Dosage Form/Route: INJECTABLE;INJECTION
Application: A077126 | Product #001
Applicant: SUN PHARMACEUTICAL INDUSTRIES LTD
Approved: Mar 14, 2008 | RLD: No | RS: No | Type: DISCN